FAERS Safety Report 7228286-9 (Version None)
Quarter: 2011Q1

REPORT INFORMATION
  Report Type: 
  Country: None (occurrence: None)
  Receive Date: 20110114
  Receipt Date: 20110111
  Transmission Date: 20110831
  Serious: Yes (Hospitalization)
  Sender: FDA-Public Use
  Company Number: GB-PFIZER INC-2010141372

PATIENT
  Age: 63 Year
  Sex: Male
  Weight: 120 kg

DRUGS (7)
  1. CAVERJECT [Concomitant]
     Dosage: UNK
  2. LYRICA [Concomitant]
     Dosage: UNK
  3. OXYCONTIN [Concomitant]
  4. LISINOPRIL [Suspect]
     Dosage: UNK
  5. LIPITOR [Concomitant]
     Dosage: UNK
  6. RELISTOR [Suspect]
     Dosage: UNK
  7. VIAGRA [Concomitant]

REACTIONS (5)
  - CONSTIPATION [None]
  - VISUAL IMPAIRMENT [None]
  - CONTUSION [None]
  - NEEDLE ISSUE [None]
  - BLOOD POTASSIUM INCREASED [None]
